FAERS Safety Report 14342535 (Version 2)
Quarter: 2018Q2

REPORT INFORMATION
  Report Type: Spontaneous
  Country: US (occurrence: US)
  Receive Date: 20180102
  Receipt Date: 20180518
  Transmission Date: 20180711
  Serious: Yes (Hospitalization, Other)
  Sender: FDA-Public Use
  Company Number: US-GLAXOSMITHKLINE-US2017200999

PATIENT
  Age: 54 Year
  Sex: Female

DRUGS (1)
  1. BC (ASPIRIN\CAFFEINE) [Suspect]
     Active Substance: ASPIRIN\CAFFEINE
     Indication: HEADACHE
     Dosage: SOMETIMES UP TO 5 TO 10 PACKETS PER DAY
     Route: 065

REACTIONS (4)
  - Brain oedema [Recovering/Resolving]
  - Metabolic encephalopathy [Recovering/Resolving]
  - Drug abuse [Unknown]
  - Toxicity to various agents [Recovering/Resolving]
